FAERS Safety Report 11442315 (Version 2)
Quarter: 2015Q3

REPORT INFORMATION
  Report Type: Spontaneous
  Country: US (occurrence: None)
  Receive Date: 20150901
  Receipt Date: 20150916
  Transmission Date: 20151125
  Serious: Yes (Other)
  Sender: FDA-Public Use
  Company Number: US-MDT-ADR-2015-01667

PATIENT
  Age: 53 Year
  Sex: Female

DRUGS (1)
  1. LIORESAL [Suspect]
     Active Substance: BACLOFEN
     Indication: MUSCLE SPASTICITY
     Dosage: UNK

REACTIONS (6)
  - Drug withdrawal syndrome [None]
  - Infusion site pain [None]
  - Infusion site discomfort [None]
  - Overdose [None]
  - No therapeutic response [None]
  - Infusion site swelling [None]
